FAERS Safety Report 9462040 (Version 2)
Quarter: 2013Q4

REPORT INFORMATION
  Report Type: Report from Study
  Country: NL (occurrence: NL)
  Receive Date: 20130816
  Receipt Date: 20131003
  Transmission Date: 20140711
  Serious: Yes (Death, Hospitalization)
  Sender: FDA-Public Use
  Company Number: NL-CELGENEUS-114-50794-13073626

PATIENT
  Age: 70 Year
  Sex: Male
  Weight: 97 kg

DRUGS (12)
  1. VIDAZA [Suspect]
     Indication: CHRONIC MYELOMONOCYTIC LEUKAEMIA
     Route: 058
     Dates: start: 20130528, end: 20130723
  2. VIDAZA [Suspect]
     Route: 058
     Dates: start: 20130625, end: 20130701
  3. NOVORAPID [Concomitant]
     Indication: PRODUCT USED FOR UNKNOWN INDICATION
     Dosage: NOT PROVIDED
     Route: 058
  4. METOPROLOL [Concomitant]
     Indication: PRODUCT USED FOR UNKNOWN INDICATION
     Dosage: 150 MILLIGRAM
     Route: 048
  5. TAMSULOSINE [Concomitant]
     Indication: PRODUCT USED FOR UNKNOWN INDICATION
     Dosage: .8 MILLIGRAM
     Route: 048
  6. METFORMIN [Concomitant]
     Indication: PRODUCT USED FOR UNKNOWN INDICATION
     Dosage: 1000 MILLIGRAM
     Route: 048
  7. RED BLOOD CELLS [Concomitant]
     Indication: PRODUCT USED FOR UNKNOWN INDICATION
     Route: 041
     Dates: start: 20130625, end: 20130625
  8. RED BLOOD CELLS [Concomitant]
     Route: 041
     Dates: start: 20130630, end: 20130630
  9. RED BLOOD CELLS [Concomitant]
     Route: 041
     Dates: start: 20130701, end: 20130701
  10. RED BLOOD CELLS [Concomitant]
     Route: 041
     Dates: start: 20130711, end: 20130711
  11. RED BLOOD CELLS [Concomitant]
     Route: 041
     Dates: start: 20130723, end: 20130723
  12. RED BLOOD CELLS [Concomitant]
     Route: 041
     Dates: start: 20130730, end: 20130730

REACTIONS (2)
  - Erysipelas [Not Recovered/Not Resolved]
  - Cardiac failure [Fatal]
